FAERS Safety Report 16810061 (Version 3)
Quarter: 2019Q3

REPORT INFORMATION
  Report Type: Spontaneous
  Country: US (occurrence: US)
  Receive Date: 20190916
  Receipt Date: 20190919
  Transmission Date: 20191005
  Serious: No
  Sender: FDA-Public Use
  Company Number: US-PFIZER INC-2019393678

PATIENT
  Age: 68 Year
  Sex: Male
  Weight: 115.6 kg

DRUGS (3)
  1. INLYTA [Suspect]
     Active Substance: AXITINIB
     Indication: FLUID REPLACEMENT
     Dosage: 5 MG, 2X/DAY (5 MG, 2 TABLETS PER DAY, IN THE MORNING AND IN THE EVENING)
     Route: 048
  2. KEYTRUDA [Suspect]
     Active Substance: PEMBROLIZUMAB
     Indication: RENAL CELL CARCINOMA STAGE IV
     Dosage: UNK, EVERY 3 WEEKS
  3. INLYTA [Suspect]
     Active Substance: AXITINIB
     Indication: NEOPLASM MALIGNANT

REACTIONS (4)
  - Insomnia [Unknown]
  - Fatigue [Unknown]
  - Back pain [Not Recovered/Not Resolved]
  - Hypoacusis [Unknown]
